FAERS Safety Report 10862302 (Version 3)
Quarter: 2015Q1

REPORT INFORMATION
  Report Type: Spontaneous
  Country: DE (occurrence: DE)
  Receive Date: 20150224
  Receipt Date: 20150313
  Transmission Date: 20150721
  Serious: Yes (Hospitalization)
  Sender: FDA-Public Use
  Company Number: DE-ABBVIE-15P-062-1350975-00

PATIENT
  Age: 78 Year
  Sex: Female

DRUGS (5)
  1. DUODOPA [Suspect]
     Active Substance: CARBIDOPA\LEVODOPA
     Indication: PARKINSON^S DISEASE
     Dosage: MD 7.3ML, CRD 2.4ML/H, ED 0.6ML
     Route: 050
     Dates: start: 20141015, end: 201502
  2. DUODOPA [Suspect]
     Active Substance: CARBIDOPA\LEVODOPA
     Dosage: MD 7.3ML, CRD 2.4ML/H, ED 0.6ML
     Route: 050
     Dates: start: 201502
  3. DUODOPA [Suspect]
     Active Substance: CARBIDOPA\LEVODOPA
     Dosage: MD 7.4ML, CRD 2.4ML/H, ED 0.6ML
     Route: 050
     Dates: start: 201502
  4. CLOZAPINE. [Concomitant]
     Active Substance: CLOZAPINE
     Indication: PRODUCT USED FOR UNKNOWN INDICATION
  5. DUODOPA [Suspect]
     Active Substance: CARBIDOPA\LEVODOPA
     Dosage: MD 7.4 ML, CRD 2.9 ML/HR, ED 0.6 ML
     Route: 050
     Dates: start: 2015

REACTIONS (5)
  - Staphylococcal infection [Recovering/Resolving]
  - Stoma site inflammation [Recovering/Resolving]
  - Cerebrovascular accident [Not Recovered/Not Resolved]
  - Akinesia [Not Recovered/Not Resolved]
  - Confusional state [Recovering/Resolving]

NARRATIVE: CASE EVENT DATE: 2014
